FAERS Safety Report 5192167-5 (Version None)
Quarter: 2006Q4

REPORT INFORMATION
  Report Type: 
  Country: None (occurrence: None)
  Receive Date: 20061221
  Receipt Date: 20061221
  Transmission Date: 20070319
  Serious: Yes (Hospitalization)
  Sender: FDA-Public Use
  Company Number: None

PATIENT
  Age: 38 Year
  Sex: Female
  Weight: 108 kg

DRUGS (1)
  1. PROMETHAZINE [Suspect]
     Indication: NAUSEA
     Dosage: 12.5 MG TO 25 MG EVERY 6 HOURS PRN IV BOLUS ( X 1 DOSE)
     Route: 040
     Dates: start: 20060921, end: 20060922

REACTIONS (4)
  - COMPARTMENT SYNDROME [None]
  - CYANOSIS [None]
  - INFUSION SITE ERYTHEMA [None]
  - INFUSION SITE SWELLING [None]
